FAERS Safety Report 10416312 (Version 2)
Quarter: 2014Q3

REPORT INFORMATION
  Report Type: Spontaneous
  Country: ES (occurrence: ES)
  Receive Date: 20140828
  Receipt Date: 20140828
  Transmission Date: 20150326
  Serious: Yes (Disabling, Other)
  Sender: FDA-Public Use
  Company Number: ES-JNJFOC-20140803124

PATIENT
  Age: 46 Year
  Sex: Male

DRUGS (2)
  1. PALIPERIDONE PALMITATE [Suspect]
     Active Substance: PALIPERIDONE PALMITATE
     Indication: SCHIZOPHRENIA
     Route: 030
  2. RISPERDAL CONSTA [Suspect]
     Active Substance: RISPERIDONE
     Indication: SCHIZOPHRENIA
     Route: 030

REACTIONS (9)
  - Dystonia [Not Recovered/Not Resolved]
  - Malaise [Not Recovered/Not Resolved]
  - Insomnia [Unknown]
  - Depression [Recovered/Resolved]
  - Psychotic disorder [Unknown]
  - Pain [Not Recovered/Not Resolved]
  - Suicidal ideation [Unknown]
  - Dyskinesia [Not Recovered/Not Resolved]
  - Aphagia [Not Recovered/Not Resolved]
